FAERS Safety Report 5960450-9 (Version None)
Quarter: 2008Q4

REPORT INFORMATION
  Report Type: 
  Country: None (occurrence: None)
  Receive Date: 20081120
  Receipt Date: 20081111
  Transmission Date: 20090506
  Serious: No
  Sender: FDA-Public Use
  Company Number: US-B.I. PHARMACEUTICALS,INC./RIDGEFIELD-2008-BP-17075BP

PATIENT
  Age: 82 Year
  Sex: Male

DRUGS (6)
  1. FLOMAX [Suspect]
     Indication: POLLAKIURIA
     Dosage: .4MG
     Route: 048
  2. ATENOLOL [Concomitant]
     Indication: HYPERTENSION
  3. HYZAAR [Concomitant]
  4. LIPITOR [Concomitant]
     Indication: BLOOD CHOLESTEROL INCREASED
  5. SYNTHROID [Concomitant]
     Indication: HYPOTHYROIDISM
  6. ASPIRIN [Concomitant]
     Indication: CARDIAC DISORDER

REACTIONS (2)
  - BLOOD GLUCOSE INCREASED [None]
  - DRUG INEFFECTIVE [None]
